FAERS Safety Report 19057238 (Version 1)
Quarter: 2021Q1

REPORT INFORMATION
  Report Type: Spontaneous
  Country: US (occurrence: US)
  Receive Date: 20210325
  Receipt Date: 20210325
  Transmission Date: 20210420
  Serious: Yes (Hospitalization)
  Sender: FDA-Public Use
  Company Number: None

PATIENT
  Sex: Male

DRUGS (14)
  1. DOK [Concomitant]
     Active Substance: DOCUSATE SODIUM
  2. KETOCONAZOLE. [Concomitant]
     Active Substance: KETOCONAZOLE
  3. POT CHLORIDE [Concomitant]
     Active Substance: POTASSIUM CHLORIDE
  4. TRIAMCINOLO [Concomitant]
  5. ATORVASTATIN [Concomitant]
     Active Substance: ATORVASTATIN
  6. METOLAZONE. [Concomitant]
     Active Substance: METOLAZONE
  7. AMIODARONE [Concomitant]
     Active Substance: AMIODARONE
  8. CLOBETASOL [Concomitant]
     Active Substance: CLOBETASOL
  9. METOCLOPRAM [Concomitant]
     Active Substance: METOCLOPRAMIDE
  10. FUROSEMIDE. [Concomitant]
     Active Substance: FUROSEMIDE
  11. PANTOPRAZOLE [Concomitant]
     Active Substance: PANTOPRAZOLE
  12. SALINE NASAL [Concomitant]
     Active Substance: SODIUM CHLORIDE
  13. XARELTO [Concomitant]
     Active Substance: RIVAROXABAN
  14. VYNDAMAX [Suspect]
     Active Substance: TAFAMIDIS
     Indication: FUNGAL INFECTION
     Route: 048
     Dates: start: 20200820

REACTIONS (1)
  - Hospitalisation [None]
